FAERS Safety Report 12497957 (Version 3)
Quarter: 2016Q2

REPORT INFORMATION
  Report Type: Report from Study
  Country: US (occurrence: US)
  Receive Date: 20160626
  Receipt Date: 20160630
  Transmission Date: 20160815
  Serious: Yes (Other)
  Sender: FDA-Public Use
  Company Number: US-TEVA-669808USA

PATIENT
  Age: 62 Year
  Sex: Female

DRUGS (1)
  1. CLOZAPINE. [Suspect]
     Active Substance: CLOZAPINE
     Route: 048

REACTIONS (2)
  - Agranulocytosis [Unknown]
  - Granulocytopenia [Not Recovered/Not Resolved]

NARRATIVE: CASE EVENT DATE: 20160618
